FAERS Safety Report 6942162-8 (Version None)
Quarter: 2010Q3

REPORT INFORMATION
  Report Type: 
  Country: None (occurrence: None)
  Receive Date: 20100826
  Receipt Date: 20100818
  Transmission Date: 20110219
  Serious: Yes (Hospitalization, Other)
  Sender: FDA-Public Use
  Company Number: CA-JNJFOC-20100806782

PATIENT
  Age: 18 Year
  Sex: Female
  Weight: 52.62 kg

DRUGS (5)
  1. REMICADE [Suspect]
     Indication: CROHN'S DISEASE
     Route: 042
  2. REMICADE [Suspect]
     Route: 042
  3. YAZ [Concomitant]
     Indication: PRODUCT USED FOR UNKNOWN INDICATION
  4. METHOTREXATE [Concomitant]
     Indication: PRODUCT USED FOR UNKNOWN INDICATION
     Dosage: TAKEN ON SATURDAYS
  5. LEUCOVORIN CALCIUM [Concomitant]
     Indication: PRODUCT USED FOR UNKNOWN INDICATION
     Dosage: TAKEN ON SUNDAYS

REACTIONS (11)
  - ANXIETY [None]
  - BACTERIAL INFECTION [None]
  - CHEST DISCOMFORT [None]
  - COLITIS [None]
  - DYSPHONIA [None]
  - DYSPNOEA [None]
  - FLUSHING [None]
  - HYPERVENTILATION [None]
  - INFUSION RELATED REACTION [None]
  - MUSCLE SPASMS [None]
  - VOMITING [None]
